FAERS Safety Report 6399924-8 (Version None)
Quarter: 2009Q4

REPORT INFORMATION
  Report Type: 
  Country: None (occurrence: None)
  Receive Date: 20091014
  Receipt Date: 20091007
  Transmission Date: 20100525
  Serious: Yes (Other)
  Sender: FDA-Public Use
  Company Number: US-AVENTIS-200918979US

PATIENT
  Sex: Female

DRUGS (2)
  1. LANTUS [Suspect]
     Route: 058
     Dates: end: 20090701
  2. ALOT OF OTHER MEDICATIONS [Concomitant]
     Dosage: DOSE: UNK

REACTIONS (4)
  - BLINDNESS [None]
  - DIABETES MELLITUS INADEQUATE CONTROL [None]
  - EYE HAEMORRHAGE [None]
  - VISUAL IMPAIRMENT [None]
